FAERS Safety Report 9388946 (Version 2)
Quarter: 2013Q4

REPORT INFORMATION
  Report Type: Report from Study
  Country: FR (occurrence: FR)
  Receive Date: 20130708
  Receipt Date: 20131003
  Transmission Date: 20140711
  Serious: Yes (Other)
  Sender: FDA-Public Use
  Company Number: PHHY2013FR070810

PATIENT
  Age: 47 Year
  Sex: Female

DRUGS (6)
  1. CERTICAN [Suspect]
     Indication: RENAL TRANSPLANT
     Dosage: UNK
     Dates: start: 20100929, end: 20110125
  2. CERTICAN [Suspect]
     Dosage: UNK
     Dates: start: 20110126
  3. MYCOPHENOLIC ACID [Suspect]
     Indication: RENAL TRANSPLANT
     Dosage: UNK
     Dates: start: 20100616, end: 20110125
  4. MYCOPHENOLIC ACID [Suspect]
     Dosage: UNK
     Dates: start: 20110126
  5. NEORAL [Suspect]
     Indication: RENAL TRANSPLANT
     Dosage: UNK
     Dates: start: 20100616, end: 20100629
  6. CORTANCYL [Concomitant]
     Indication: RENAL TRANSPLANT
     Dosage: UNK
     Dates: start: 20100525

REACTIONS (4)
  - Hypertrophic cardiomyopathy [Unknown]
  - Ovarian cyst [Unknown]
  - Osteopenia [Unknown]
  - Arterial bruit [Unknown]
